FAERS Safety Report 23514094 (Version 1)
Quarter: 2024Q1

REPORT INFORMATION
  Report Type: Spontaneous
  Country: US (occurrence: None)
  Receive Date: 20240211
  Receipt Date: 20240211
  Transmission Date: 20240410
  Serious: Yes (Other)
  Sender: FDA-Public Use
  Company Number: None

PATIENT
  Age: 12 Year
  Sex: Female

DRUGS (1)
  1. MUCINEX INSTASOOTHE SORE THROAT PLUS PAIN RELIEF (BENZOCAINE\MENTHOL) [Suspect]
     Active Substance: BENZOCAINE\MENTHOL
     Indication: Oropharyngeal pain
     Dosage: FREQUENCY : TWICE A DAY;?
     Route: 048
     Dates: start: 20240206, end: 20240208

REACTIONS (2)
  - Haemoptysis [None]
  - Epistaxis [None]

NARRATIVE: CASE EVENT DATE: 20240208
